FAERS Safety Report 9923484 (Version 1)
Quarter: 2014Q1

REPORT INFORMATION
  Report Type: Spontaneous
  Country: US (occurrence: US)
  Receive Date: 20140225
  Receipt Date: 20140225
  Transmission Date: 20141002
  Serious: No
  Sender: FDA-Public Use
  Company Number: US-AMGEN-USASP2013082272

PATIENT
  Age: 54 Year
  Sex: Female
  Weight: 81.63 kg

DRUGS (14)
  1. ENBREL [Suspect]
     Indication: PRODUCT USED FOR UNKNOWN INDICATION
     Dosage: 50 MG, QWK
     Route: 058
     Dates: start: 201304, end: 201308
  2. CRESTOR [Concomitant]
     Dosage: UNK
  3. FENOFIBRATE [Concomitant]
     Dosage: UNK
  4. FOLIC ACID [Concomitant]
     Dosage: UNK
  5. LEVOTHROID [Concomitant]
     Dosage: UNK
  6. METHOTREXATE [Concomitant]
     Dosage: UNK
  7. NUCYNTA [Concomitant]
     Dosage: UNK
  8. OMEPRAZOLE [Concomitant]
     Dosage: UNK
  9. PAXIL                              /00500401/ [Concomitant]
     Dosage: UNK
  10. PLAQUENIL                          /00072602/ [Concomitant]
     Dosage: UNK
  11. RANITIDINE [Concomitant]
     Dosage: UNK
  12. SULFASALAZINE [Concomitant]
     Dosage: UNK
  13. TRAZODONE [Concomitant]
     Dosage: UNK
  14. VITAMIN D2 [Concomitant]
     Dosage: UNK

REACTIONS (3)
  - Drug hypersensitivity [Recovered/Resolved]
  - Rash papular [Recovered/Resolved]
  - Rash pruritic [Recovered/Resolved]
